FAERS Safety Report 7452323-X (Version None)
Quarter: 2011Q2

REPORT INFORMATION
  Report Type: 
  Country: None (occurrence: None)
  Receive Date: 20110425
  Receipt Date: 20110415
  Transmission Date: 20111010
  Serious: Yes (Life-Threatening, Hospitalization, Other)
  Sender: FDA-Public Use
  Company Number: 2010SP010768

PATIENT
  Age: 35 Year
  Sex: Female
  Weight: 73.9363 kg

DRUGS (11)
  1. NUVARING [Suspect]
     Indication: CONTRACEPTION
     Dates: start: 20070501, end: 20080301
  2. NUVARING [Suspect]
     Indication: POLYCYSTIC OVARIES
     Dates: start: 20070501, end: 20080301
  3. NUVARING [Suspect]
     Indication: CONTRACEPTION
     Dates: start: 20080501
  4. NUVARING [Suspect]
     Indication: POLYCYSTIC OVARIES
     Dates: start: 20080501
  5. SUDAFED 12 HOUR [Concomitant]
  6. LOVENOX [Suspect]
     Indication: ANTICOAGULANT THERAPY
     Dosage: 80 MG;BID;SC
     Route: 058
     Dates: start: 20080929, end: 20081002
  7. ADVIL LIQUI-GELS [Concomitant]
  8. COUMADIN [Suspect]
     Indication: ANTICOAGULANT THERAPY
     Dosage: 6 MG;QD ; 10 MG;QD
     Dates: start: 20080901, end: 20081002
  9. COUMADIN [Suspect]
     Indication: ANTICOAGULANT THERAPY
     Dosage: 6 MG;QD ; 10 MG;QD
     Dates: start: 20080301, end: 20080901
  10. METFORMIN HCL [Concomitant]
  11. NUVARING [Suspect]

REACTIONS (47)
  - PULMONARY INFARCTION [None]
  - BILE DUCT OBSTRUCTION [None]
  - PITUITARY TUMOUR BENIGN [None]
  - ORAL HERPES [None]
  - MIGRAINE [None]
  - UPPER GASTROINTESTINAL HAEMORRHAGE [None]
  - MENOMETRORRHAGIA [None]
  - DYSPHAGIA [None]
  - COAGULOPATHY [None]
  - HYPOXIA [None]
  - HYPERTENSION [None]
  - CERVICAL CYST [None]
  - PELVIC FLUID COLLECTION [None]
  - CHOLECYSTITIS CHRONIC [None]
  - COAGULATION FACTOR IX LEVEL DECREASED [None]
  - DYSURIA [None]
  - ABSCESS INTESTINAL [None]
  - CONSTIPATION [None]
  - VIRAL PHARYNGITIS [None]
  - PAIN [None]
  - BILE DUCT STONE [None]
  - RESPIRATORY ARREST [None]
  - EXERCISE TOLERANCE DECREASED [None]
  - NEPHROLITHIASIS [None]
  - SINUS DISORDER [None]
  - OVARIAN CYST [None]
  - HEADACHE [None]
  - NASAL CONGESTION [None]
  - PNEUMOTHORAX [None]
  - PLEURAL EFFUSION [None]
  - HAEMORRHOIDS [None]
  - URINARY TRACT INFECTION [None]
  - HOT FLUSH [None]
  - ATELECTASIS [None]
  - LUNG CONSOLIDATION [None]
  - PROCTOCOLITIS [None]
  - MELANOSIS COLI [None]
  - RIGHT VENTRICULAR FAILURE [None]
  - PULMONARY EMBOLISM [None]
  - CHOLELITHIASIS [None]
  - HAEMORRHAGIC ANAEMIA [None]
  - LOSS OF CONSCIOUSNESS [None]
  - SACROILIITIS [None]
  - CARDIOLIPIN ANTIBODY POSITIVE [None]
  - INTERSTITIAL LUNG DISEASE [None]
  - INTERNATIONAL NORMALISED RATIO DECREASED [None]
  - DEEP VEIN THROMBOSIS [None]
